FAERS Safety Report 7025485-6 (Version None)
Quarter: 2010Q4

REPORT INFORMATION
  Report Type: 
  Country: None (occurrence: None)
  Receive Date: 20101001
  Receipt Date: 20100924
  Transmission Date: 20110411
  Serious: Yes (Hospitalization)
  Sender: FDA-Public Use
  Company Number: US-GENENTECH-261595

PATIENT
  Sex: Male
  Weight: 163.27 kg

DRUGS (13)
  1. XOLAIR [Suspect]
     Indication: ASTHMA
     Dosage: UNK, UNK
     Dates: end: 20080515
  2. PREDNISONE [Concomitant]
     Indication: ASTHMA
     Dosage: 20 MG, QD
     Route: 048
     Dates: start: 19870101
  3. BLOOD PRESSURE MEDICATIONS NOS [Concomitant]
     Indication: BLOOD PRESSURE
  4. WATER PILL (UNK INGREDIENTS) [Concomitant]
     Indication: PRODUCT USED FOR UNKNOWN INDICATION
  5. INHALER (UNK INGREDIENTS) [Concomitant]
     Indication: ASTHMA
  6. FLOMAX [Concomitant]
     Indication: PRODUCT USED FOR UNKNOWN INDICATION
     Dosage: UNK MG, QD
     Route: 048
     Dates: start: 20070701
  7. LASIX [Concomitant]
     Indication: PRODUCT USED FOR UNKNOWN INDICATION
     Dosage: 40 MG, QD
     Route: 048
     Dates: start: 19890101
  8. SPIRIVA [Concomitant]
     Indication: ASTHMA
     Dosage: UNK
     Route: 055
     Dates: start: 20070101
  9. NASONEX [Concomitant]
     Indication: SINUSITIS
     Dosage: 2 UNK, QD
     Route: 055
     Dates: start: 20070101
  10. FEXOFENADINE HCL [Concomitant]
     Indication: HYPERSENSITIVITY
     Dosage: 80 MG, PRN
     Route: 048
     Dates: start: 20070101
  11. PROVENTIL [Concomitant]
     Indication: ASTHMA
     Dosage: 2 PUFF, PRN
     Route: 055
     Dates: start: 19870101
  12. ACCUPRIL [Concomitant]
     Indication: BLOOD PRESSURE
     Dosage: 10 MG, QD
     Route: 048
     Dates: start: 19890101
  13. ASMANEX TWISTHALER [Concomitant]
     Indication: ASTHMA
     Dosage: UNK
     Route: 055
     Dates: start: 20070101

REACTIONS (3)
  - BLOOD PRESSURE DECREASED [None]
  - PRURITUS [None]
  - SUPRAVENTRICULAR TACHYCARDIA [None]
